FAERS Safety Report 7510237-0 (Version None)
Quarter: 2011Q2

REPORT INFORMATION
  Report Type: 
  Country: None (occurrence: None)
  Receive Date: 20110527
  Receipt Date: 20110516
  Transmission Date: 20111010
  Serious: Yes (Hospitalization, Other)
  Sender: FDA-Public Use
  Company Number: PHHY2011US41866

PATIENT
  Age: 34 Year
  Sex: Male

DRUGS (3)
  1. LEVOFLOXACIN [Suspect]
     Dosage: UNK UKN, UNK
  2. MYCOPHENOLATE MOFETIL [Suspect]
     Dosage: UNK UKN, UNK
     Dates: start: 20080101
  3. HYDROXYCHLOROQUINE SULFATE [Suspect]
     Dosage: UNK UKN, UNK

REACTIONS (16)
  - PRODUCTIVE COUGH [None]
  - VIITH NERVE PARALYSIS [None]
  - OCULAR ICTERUS [None]
  - HAEMOGLOBIN DECREASED [None]
  - PYREXIA [None]
  - APHASIA [None]
  - BLOOD LACTATE DEHYDROGENASE INCREASED [None]
  - URINE COLOUR ABNORMAL [None]
  - DYSPNOEA [None]
  - HAEMOPTYSIS [None]
  - RETICULOCYTE COUNT INCREASED [None]
  - PNEUMONIA [None]
  - RENAL FAILURE ACUTE [None]
  - ASTHENIA [None]
  - THROMBOTIC THROMBOCYTOPENIC PURPURA [None]
  - RED BLOOD CELL SCHISTOCYTES PRESENT [None]
